FAERS Safety Report 5686101-9 (Version None)
Quarter: 2008Q1

REPORT INFORMATION
  Report Type: 
  Country: None (occurrence: None)
  Receive Date: 20080328
  Receipt Date: 20070806
  Transmission Date: 20080703
  Serious: No
  Sender: FDA-Public Use
  Company Number: US-BAYER-US-2007-028464

PATIENT
  Age: 32 Year
  Sex: Female
  Weight: 52 kg

DRUGS (2)
  1. MIRENA [Suspect]
     Indication: CONTRACEPTION
     Route: 015
     Dates: start: 20070627, end: 20070730
  2. VITAMIN TAB [Concomitant]

REACTIONS (6)
  - ARTHRALGIA [None]
  - METRORRHAGIA [None]
  - MOOD SWINGS [None]
  - NAUSEA [None]
  - SINUS HEADACHE [None]
  - VAGINAL DISCHARGE [None]
